FAERS Safety Report 6440119-7 (Version None)
Quarter: 2009Q4

REPORT INFORMATION
  Report Type: 
  Country: None (occurrence: None)
  Receive Date: 20091113
  Receipt Date: 20081218
  Transmission Date: 20100525
  Serious: No
  Sender: FDA-Public Use
  Company Number: A0761099A

PATIENT
  Age: 69 Year
  Sex: Female

DRUGS (6)
  1. CARVEDILOL [Suspect]
     Indication: HYPERTENSION
     Route: 048
  2. LASIX [Concomitant]
  3. DIGOSIN [Concomitant]
  4. PLAVIX [Concomitant]
  5. LISINOPRIL [Concomitant]
  6. FLU VACCINE [Concomitant]

REACTIONS (2)
  - ABDOMINAL DISCOMFORT [None]
  - NAUSEA [None]
